FAERS Safety Report 4364006-3 (Version None)
Quarter: 2004Q2

REPORT INFORMATION
  Report Type: 
  Country: None (occurrence: None)
  Receive Date: 20040514
  Receipt Date: 20040429
  Transmission Date: 20050107
  Serious: Yes (Life-Threatening)
  Sender: FDA-Public Use
  Company Number: THYM-10129

PATIENT
  Age: 16 Year
  Sex: Male
  Weight: 82 kg

DRUGS (8)
  1. THYMOGLOBULIN [Suspect]
     Indication: APLASTIC ANAEMIA
     Dosage: 2.5 MG/KG QD IV
     Route: 042
     Dates: start: 20040329, end: 20040402
  2. CYCLOSPORINE [Concomitant]
  3. PREDNISONE [Concomitant]
  4. IMIPENEM [Concomitant]
  5. VANCOMYCIN [Concomitant]
  6. AMPHOTERICIN B [Concomitant]
  7. NEUPOGEN [Concomitant]
  8. TNS [Concomitant]

REACTIONS (9)
  - ACUTE RESPIRATORY DISTRESS SYNDROME [None]
  - GENERALISED OEDEMA [None]
  - HYPOTENSION [None]
  - INTERSTITIAL LUNG DISEASE [None]
  - MULTI-ORGAN FAILURE [None]
  - PLEURAL EFFUSION [None]
  - PYREXIA [None]
  - RENAL FAILURE [None]
  - TACHYCARDIA [None]
